FAERS Safety Report 7357356-X (Version None)
Quarter: 2011Q1

REPORT INFORMATION
  Report Type: 
  Country: None (occurrence: None)
  Receive Date: 20110308
  Receipt Date: 20110224
  Transmission Date: 20110831
  Serious: Yes (Other)
  Sender: FDA-Public Use
  Company Number: US-1185152

PATIENT
  Age: 76 Year
  Sex: Male

DRUGS (1)
  1. BSS [Suspect]
     Dosage: (INTRAOCULAR)
     Route: 031
     Dates: start: 20110223, end: 20110223

REACTIONS (1)
  - TOXIC ANTERIOR SEGMENT SYNDROME [None]
